FAERS Safety Report 14344771 (Version 1)
Quarter: 2018Q1

REPORT INFORMATION
  Report Type: Spontaneous
  Country: AU (occurrence: AU)
  Receive Date: 20180103
  Receipt Date: 20180103
  Transmission Date: 20180509
  Serious: Yes (Hospitalization)
  Sender: FDA-Public Use
  Company Number: AU-INGENUS PHARMACEUTICALS NJ, LLC-ING201712-000768

PATIENT
  Age: 39 Year
  Sex: Male

DRUGS (6)
  1. POTASSIUM [Concomitant]
     Active Substance: POTASSIUM
     Route: 048
  2. CARISOPRODOL, ASPIRIN AND CODEINE PHOSPHATE [Suspect]
     Active Substance: ASPIRIN\CARISOPRODOL\CODEINE PHOSPHATE
  3. POTASSIUM [Concomitant]
     Active Substance: POTASSIUM
     Route: 042
  4. POTASSIUM [Concomitant]
     Active Substance: POTASSIUM
     Route: 042
  5. IBUPROFEN. [Suspect]
     Active Substance: IBUPROFEN
  6. CAFFEINE. [Concomitant]
     Active Substance: CAFFEINE

REACTIONS (5)
  - Intentional product misuse [Recovered/Resolved]
  - Rhabdomyolysis [Recovered/Resolved]
  - Myopathy [Recovered/Resolved]
  - Quadriparesis [Recovered/Resolved]
  - Hypokalaemia [Recovered/Resolved]
